FAERS Safety Report 9172555 (Version 1)
Quarter: 2013Q1

REPORT INFORMATION
  Report Type: Spontaneous
  Country: US (occurrence: US)
  Receive Date: 20130318
  Receipt Date: 20130318
  Transmission Date: 20140127
  Serious: Yes (Congenital Anomaly, Other)
  Sender: FDA-Public Use
  Company Number: US-RB-045193-12

PATIENT
  Sex: Female

DRUGS (1)
  1. SUBOXONE UNSPECIFIED [Suspect]
     Indication: DRUG DEPENDENCE
     Route: 064
     Dates: start: 201001, end: 20100423

REACTIONS (2)
  - Foetal exposure during pregnancy [Recovered/Resolved]
  - Osteogenesis imperfecta [Not Recovered/Not Resolved]
